FAERS Safety Report 11273022 (Version 2)
Quarter: 2017Q2

REPORT INFORMATION
  Report Type: Report from Study
  Country: CA (occurrence: CA)
  Receive Date: 20150715
  Receipt Date: 20170417
  Transmission Date: 20170829
  Serious: Yes (Hospitalization, Other)
  Sender: FDA-Public Use
  Company Number: CA-ELI_LILLY_AND_COMPANY-CA201507002426

PATIENT
  Age: 66 Year
  Sex: Female

DRUGS (13)
  1. SPIRONOLACTONE. [Concomitant]
     Active Substance: SPIRONOLACTONE
  2. SPIRIVA [Concomitant]
     Active Substance: TIOTROPIUM BROMIDE MONOHYDRATE
  3. SENNOSIDES A+B [Concomitant]
     Active Substance: SENNOSIDES A AND B
  4. OXYGEN. [Suspect]
     Active Substance: OXYGEN
  5. TRACLEER [Concomitant]
     Active Substance: BOSENTAN
  6. LEVOTHYROXINE. [Concomitant]
     Active Substance: LEVOTHYROXINE
  7. PEG 3350 [Concomitant]
     Active Substance: POLYETHYLENE GLYCOL 3350
  8. LASIX [Concomitant]
     Active Substance: FUROSEMIDE
  9. BUPRENORPHINE. [Concomitant]
     Active Substance: BUPRENORPHINE
  10. ZENHALE [Concomitant]
     Active Substance: FORMOTEROL FUMARATE\MOMETASONE FUROATE
  11. ALEVE [Concomitant]
     Active Substance: NAPROXEN SODIUM
  12. TADALAFIL [Suspect]
     Active Substance: TADALAFIL
     Dosage: 40 MG, QD
     Dates: start: 20140905
  13. TADALAFIL [Suspect]
     Active Substance: TADALAFIL
     Indication: PULMONARY ARTERIAL HYPERTENSION
     Dosage: 20 MG, UNKNOWN
     Dates: start: 20110801

REACTIONS (2)
  - Epistaxis [Recovered/Resolved]
  - Cardiac failure congestive [Not Recovered/Not Resolved]

NARRATIVE: CASE EVENT DATE: 20170408
